FAERS Safety Report 9305039 (Version 2)
Quarter: 2013Q2

REPORT INFORMATION
  Report Type: Spontaneous
  Country: TR (occurrence: TR)
  Receive Date: 20130523
  Receipt Date: 20130607
  Transmission Date: 20140414
  Serious: Yes (Other)
  Sender: FDA-Public Use
  Company Number: TR-009507513-1305TUR006700

PATIENT
  Age: 66 Year
  Sex: Male

DRUGS (8)
  1. COSOPT [Suspect]
     Indication: GLAUCOMA
     Dosage: UNK, BID
     Dates: start: 2004
  2. COSOPT [Suspect]
     Dosage: UNK
     Dates: start: 20130601
  3. SULFAMETHOXAZOLE (+) TRIMETHOPRIM [Concomitant]
  4. NORVASC [Concomitant]
  5. BEMIKS [Concomitant]
  6. PHOS [Concomitant]
  7. FOLBIOL [Concomitant]
  8. ACETAMINOPHEN [Concomitant]
     Dosage: 0.5 DF, PRN

REACTIONS (5)
  - Renal failure [Unknown]
  - Cataract operation [Unknown]
  - Eyelid irritation [Recovered/Resolved]
  - Lacrimation increased [Recovered/Resolved]
  - Dialysis [Unknown]
